FAERS Safety Report 6904536-0 (Version None)
Quarter: 2010Q3

REPORT INFORMATION
  Report Type: 
  Country: None (occurrence: None)
  Receive Date: 20100804
  Receipt Date: 20090611
  Transmission Date: 20110219
  Serious: Yes (Other)
  Sender: FDA-Public Use
  Company Number: US-PFIZER INC-2009154335

PATIENT
  Sex: Male

DRUGS (6)
  1. LYRICA [Suspect]
     Indication: GRAND MAL CONVULSION
     Dosage: FREQUENCY: QHS, EVERY DAY;
     Dates: start: 20070301
  2. ZONEGRAN [Concomitant]
     Dosage: 300 MG, AT NIGHT
  3. PLENDIL [Concomitant]
     Dosage: UNK
  4. BENAZEPRIL [Concomitant]
     Dosage: UNK
  5. RANITIDINE [Concomitant]
     Dosage: UNK
  6. SAW PALMETTO [Concomitant]
     Dosage: UNK

REACTIONS (6)
  - ANXIETY [None]
  - BODY HEIGHT DECREASED [None]
  - GRAND MAL CONVULSION [None]
  - HAIR GROWTH ABNORMAL [None]
  - LIP SWELLING [None]
  - SWOLLEN TONGUE [None]
